FAERS Safety Report 9884964 (Version 2)
Quarter: 2014Q1

REPORT INFORMATION
  Report Type: Spontaneous
  Country: FR (occurrence: FR)
  Receive Date: 20140210
  Receipt Date: 20140211
  Transmission Date: 20141002
  Serious: Yes (Death, Hospitalization, Other)
  Sender: FDA-Public Use
  Company Number: FR-JNJFOC-20140202442

PATIENT
  Age: 70 Year
  Sex: Male

DRUGS (2)
  1. XARELTO [Suspect]
     Indication: THROMBOSIS
     Route: 048
  2. MODOPAR [Concomitant]
     Indication: PARKINSON^S DISEASE
     Route: 065

REACTIONS (8)
  - Gastrointestinal haemorrhage [Fatal]
  - Diverticulum [Fatal]
  - Shock haemorrhagic [Fatal]
  - Multi-organ failure [Fatal]
  - Peritoneal haemorrhage [Fatal]
  - Liver disorder [Fatal]
  - Embolic stroke [Unknown]
  - Cardiac arrest [Unknown]
